FAERS Safety Report 10429349 (Version 1)
Quarter: 2014Q3

REPORT INFORMATION
  Report Type: Spontaneous
  Country: US (occurrence: None)
  Receive Date: 20140822
  Receipt Date: 20140822
  Transmission Date: 20150326
  Serious: Yes (Other)
  Sender: FDA-Public Use
  Company Number: 54973 AE # 1557

PATIENT
  Age: 73 Year
  Sex: Female

DRUGS (6)
  1. LIPITOR [Concomitant]
     Active Substance: ATORVASTATIN CALCIUM
  2. HUMALOG [Concomitant]
     Active Substance: INSULIN LISPRO
  3. XANAX [Concomitant]
     Active Substance: ALPRAZOLAM
  4. CALMS FORTE 4 KIDS [Suspect]
     Active Substance: HOMEOPATHICS
     Indication: BODY TEMPERATURE INCREASED
     Dosage: 2 TABLETS SL AT BEDTIME
  5. LOPRESSOR [Concomitant]
     Active Substance: METOPROLOL TARTRATE
  6. CALMS FORTE 4 KIDS [Suspect]
     Active Substance: HOMEOPATHICS
     Indication: TENSION
     Dosage: 2 TABLETS SL AT BEDTIME

REACTIONS (4)
  - Dysstasia [None]
  - Gait disturbance [None]
  - Somnambulism [None]
  - Speech disorder [None]

NARRATIVE: CASE EVENT DATE: 20140805
